FAERS Safety Report 8448955-2 (Version None)
Quarter: 2012Q2

REPORT INFORMATION
  Report Type: 
  Country: None (occurrence: None)
  Receive Date: 20120619
  Receipt Date: 20120611
  Transmission Date: 20120825
  Serious: Yes (Hospitalization)
  Sender: FDA-Public Use
  Company Number: DE-GLAXOSMITHKLINE-D0075890A

PATIENT
  Age: 59 Year
  Sex: Female
  Weight: 87 kg

DRUGS (1)
  1. NARATRIPTAN [Suspect]
     Indication: MIGRAINE
     Dosage: 2.5MG UNKNOWN
     Route: 048
     Dates: start: 20111124, end: 20111124

REACTIONS (1)
  - DIPLOPIA [None]
